FAERS Safety Report 4925431-2 (Version None)
Quarter: 2006Q1

REPORT INFORMATION
  Report Type: 
  Country: None (occurrence: None)
  Receive Date: 20060228
  Receipt Date: 20050217
  Transmission Date: 20060701
  Serious: No
  Sender: FDA-Public Use
  Company Number: US-GLAXOSMITHKLINE-A0546063A

PATIENT
  Age: 43 Year
  Sex: Female

DRUGS (5)
  1. LAMICTAL [Suspect]
     Indication: BIPOLAR DISORDER
     Dosage: 50MG PER DAY
     Route: 048
     Dates: end: 20050203
  2. LITHIUM CARBONATE [Concomitant]
  3. TRAZODONE [Concomitant]
  4. FLEXERIL [Concomitant]
  5. HALCION [Concomitant]
     Route: 065

REACTIONS (1)
  - EMOTIONAL DISTRESS [None]
